FAERS Safety Report 19670824 (Version 7)
Quarter: 2024Q2

REPORT INFORMATION
  Report Type: Report from Study
  Country: US (occurrence: US)
  Receive Date: 20210806
  Receipt Date: 20240410
  Transmission Date: 20240715
  Serious: Yes (Other)
  Sender: FDA-Public Use
  Company Number: US-TAKEDA-US201918912

PATIENT
  Age: 34 Year
  Sex: Female

DRUGS (3)
  1. HUMAN IMMUNOGLOBULIN G [Suspect]
     Active Substance: HUMAN IMMUNOGLOBULIN G
     Indication: Immunodeficiency common variable
     Dosage: 17 GRAM, 1/WEEK
     Route: 065
  2. HUMAN IMMUNOGLOBULIN G [Suspect]
     Active Substance: HUMAN IMMUNOGLOBULIN G
     Indication: Primary immunodeficiency syndrome
     Dosage: 17 GRAM, Q2WEEKS
     Route: 065
  3. COVID-19 VACCINE NOS [Suspect]
     Active Substance: COVID-19 VACCINE NOS
     Indication: COVID-19 immunisation
     Dosage: UNK
     Route: 065

REACTIONS (12)
  - Meningitis aseptic [Not Recovered/Not Resolved]
  - Meningitis [Unknown]
  - Anxiety [Unknown]
  - Dyspnoea [Unknown]
  - Urticaria [Unknown]
  - Drug hypersensitivity [Unknown]
  - Allergy to immunoglobulin therapy [Unknown]
  - Allergy to vaccine [Unknown]
  - Occipital neuralgia [Unknown]
  - Migraine [Unknown]
  - Sinusitis [Unknown]
  - COVID-19 [Unknown]

NARRATIVE: CASE EVENT DATE: 20190606
